FAERS Safety Report 23895852 (Version 1)
Quarter: 2024Q2

REPORT INFORMATION
  Report Type: Spontaneous
  Country: CA (occurrence: CA)
  Receive Date: 20240524
  Receipt Date: 20240524
  Transmission Date: 20240717
  Serious: Yes (Hospitalization, Other)
  Sender: FDA-Public Use
  Company Number: CA-Pharmaand-2024000354

PATIENT
  Age: 66 Year
  Sex: Female

DRUGS (1)
  1. PEGASYS [Suspect]
     Active Substance: PEGINTERFERON ALFA-2A
     Indication: Product used for unknown indication
     Route: 058

REACTIONS (3)
  - Abdominal pain [Unknown]
  - Colitis ischaemic [Unknown]
  - Haematochezia [Unknown]
